FAERS Safety Report 10163747 (Version 2)
Quarter: 2014Q2

REPORT INFORMATION
  Report Type: Report from Study
  Country: CA (occurrence: CA)
  Receive Date: 20140509
  Receipt Date: 20140509
  Transmission Date: 20141212
  Serious: Yes (Hospitalization, Other)
  Sender: FDA-Public Use
  Company Number: CA-ABBVIE-14P-028-1213807-00

PATIENT
  Sex: Male

DRUGS (3)
  1. HUMIRA [Suspect]
     Indication: CROHN^S DISEASE
     Route: 058
     Dates: start: 20130708
  2. HUMIRA [Suspect]
     Dosage: DOSEAGE INCREASED
     Route: 058
  3. HUMIRA [Suspect]
     Route: 058
     Dates: start: 20140424

REACTIONS (5)
  - Haematochezia [Unknown]
  - Drug ineffective [Unknown]
  - Diarrhoea [Unknown]
  - Abdominal pain [Unknown]
  - Drug ineffective [Not Recovered/Not Resolved]
